FAERS Safety Report 7101010-6 (Version None)
Quarter: 2010Q4

REPORT INFORMATION
  Report Type: 
  Country: None (occurrence: None)
  Receive Date: 20101113
  Receipt Date: 20100414
  Transmission Date: 20110411
  Serious: No
  Sender: FDA-Public Use
  Company Number: US-ALLERGAN-1004899US

PATIENT
  Sex: Female

DRUGS (1)
  1. BOTOXA? [Suspect]
     Indication: MUSCLE SPASMS
     Dosage: 45 UNITS, SINGLE
     Dates: start: 20100401, end: 20100401

REACTIONS (1)
  - DRUG INEFFECTIVE [None]
